FAERS Safety Report 7626011-0 (Version None)
Quarter: 2011Q3

REPORT INFORMATION
  Report Type: 
  Country: None (occurrence: None)
  Receive Date: 20110721
  Receipt Date: 20110712
  Transmission Date: 20111222
  Serious: Yes (Hospitalization)
  Sender: FDA-Public Use
  Company Number: FR-ASTRAZENECA-2011SE41845

PATIENT
  Age: 66 Year
  Sex: Male

DRUGS (9)
  1. ACETAMINOPHEN [Suspect]
     Route: 048
     Dates: start: 20091101, end: 20091101
  2. OFLOXACIN [Suspect]
     Route: 048
  3. MORPHINE SULFATE [Concomitant]
     Route: 048
  4. LYRICA [Suspect]
     Route: 048
     Dates: start: 20091101, end: 20091101
  5. PREVISCAN [Concomitant]
     Route: 048
  6. NEXIUM [Suspect]
     Route: 048
     Dates: end: 20091101
  7. LEVOTHYROXINE SODIUM [Concomitant]
     Route: 048
  8. FORLAX [Concomitant]
     Route: 048
     Dates: end: 20091101
  9. TAMIFLU [Suspect]
     Route: 048
     Dates: start: 20091101, end: 20091101

REACTIONS (3)
  - INFLUENZA [None]
  - BURNING SENSATION [None]
  - RENAL TUBULAR DISORDER [None]
